FAERS Safety Report 9434830 (Version 1)
Quarter: 2013Q3

REPORT INFORMATION
  Report Type: Spontaneous
  Country: US (occurrence: US)
  Receive Date: 20130801
  Receipt Date: 20130801
  Transmission Date: 20140515
  Serious: Yes (Hospitalization)
  Sender: FDA-Public Use
  Company Number: US-PFIZER INC-2013219774

PATIENT
  Age: 78 Year
  Sex: Male

DRUGS (9)
  1. METRONIDAZOLE [Suspect]
     Indication: CLOSTRIDIUM DIFFICILE INFECTION
     Dosage: UNK
     Route: 042
  2. METRONIDAZOLE [Suspect]
     Indication: RENAL FAILURE ACUTE
  3. METRONIDAZOLE [Suspect]
     Indication: SEPSIS
  4. VANCOMYCIN HCL [Suspect]
     Indication: CLOSTRIDIUM DIFFICILE INFECTION
     Dosage: UNK
     Route: 048
  5. VANCOMYCIN HCL [Suspect]
     Indication: RENAL FAILURE ACUTE
     Dosage: UNK
     Route: 048
  6. VANCOMYCIN HCL [Suspect]
     Indication: SEPSIS
  7. PREDNISONE [Concomitant]
     Indication: HYPOPITUITARISM
     Dosage: 5 MG DAILY
  8. PREDNISONE [Concomitant]
     Dosage: 20 MG DAILY
  9. PREDNISONE [Concomitant]
     Dosage: 5 MG DAILY

REACTIONS (2)
  - Fatigue [Unknown]
  - Anaemia [Unknown]
